FAERS Safety Report 9715836 (Version 1)
Quarter: 2013Q4

REPORT INFORMATION
  Report Type: Report from Study
  Country: PT (occurrence: PT)
  Receive Date: 20131127
  Receipt Date: 20131127
  Transmission Date: 20140711
  Serious: Yes (Death, Other)
  Sender: FDA-Public Use
  Company Number: PT-ROCHE-1309743

PATIENT
  Age: 83 Year
  Sex: Male
  Weight: 60 kg

DRUGS (8)
  1. RANIBIZUMAB [Suspect]
     Indication: AGE-RELATED MACULAR DEGENERATION
     Route: 050
     Dates: start: 20091113
  2. RANIBIZUMAB [Suspect]
     Route: 050
     Dates: start: 20130308, end: 20130308
  3. DUTASTERIDE [Concomitant]
     Route: 065
     Dates: start: 2003
  4. LYRICA [Concomitant]
     Route: 065
     Dates: start: 2008
  5. LORENIN [Concomitant]
     Route: 065
     Dates: start: 2008
  6. MIRTAZAPINA [Concomitant]
     Route: 065
     Dates: start: 2008
  7. INIBACE PLUS [Concomitant]
     Route: 065
     Dates: start: 2003
  8. NORVASC VS PLACEBO [Concomitant]
     Route: 065
     Dates: start: 2003

REACTIONS (5)
  - Death [Fatal]
  - Weight decreased [Unknown]
  - Abdominal pain [Unknown]
  - Malignant lymphoid neoplasm [Unknown]
  - Neoplasm malignant [Unknown]
